FAERS Safety Report 13795113 (Version 4)
Quarter: 2017Q4

REPORT INFORMATION
  Report Type: Report from Study
  Country: CO (occurrence: CO)
  Receive Date: 20170726
  Receipt Date: 20171101
  Transmission Date: 20180320
  Serious: Yes (Other)
  Sender: FDA-Public Use
  Company Number: PHHY2017CO108159

PATIENT
  Age: 31 Year
  Sex: Female
  Weight: 55 kg

DRUGS (1)
  1. SANDOSTATIN LAR DEPOT [Suspect]
     Active Substance: OCTREOTIDE ACETATE
     Indication: NEUROENDOCRINE TUMOUR
     Dosage: 30 MG, QMO
     Route: 030
     Dates: start: 20160808, end: 201701

REACTIONS (4)
  - Stomach mass [Recovering/Resolving]
  - Intestinal mass [Recovering/Resolving]
  - Weight decreased [Unknown]
  - Pulmonary mass [Recovering/Resolving]

NARRATIVE: CASE EVENT DATE: 201705
